FAERS Safety Report 20977681 (Version 1)
Quarter: 2022Q2

REPORT INFORMATION
  Report Type: Spontaneous
  Country: DE (occurrence: DE)
  Receive Date: 20220618
  Receipt Date: 20220618
  Transmission Date: 20220721
  Serious: Yes (Hospitalization, Other)
  Sender: FDA-Public Use
  Company Number: None

PATIENT
  Age: 68 Year
  Sex: Male

DRUGS (7)
  1. CLOZAPINE [Suspect]
     Active Substance: CLOZAPINE
     Dosage: 0-150MG
     Route: 048
     Dates: start: 20220101, end: 20220429
  2. TORSEMIDE [Concomitant]
     Active Substance: TORSEMIDE
     Dosage: FOR MONTHS
     Route: 048
  3. CALCIUM [Concomitant]
     Active Substance: CALCIUM
     Dosage: FOR MONTHS
  4. NALOXONE HYDROCHLORIDE\OXYCODONE HYDROCHLORIDE [Concomitant]
     Active Substance: NALOXONE HYDROCHLORIDE\OXYCODONE HYDROCHLORIDE
     Dosage: 30/15MG FOR YEARS
  5. MOVICOL [Concomitant]
     Active Substance: POLYETHYLENE GLYCOL 3350\POTASSIUM CHLORIDE\SODIUM BICARBONATE\SODIUM CHLORIDE
     Dosage: FOR MONTHS
  6. LORAZEPAM [Concomitant]
     Active Substance: LORAZEPAM
     Route: 048
     Dates: start: 20220101
  7. FOLIC ACID [Concomitant]
     Active Substance: FOLIC ACID
     Dosage: FOR MONTHS
     Route: 048

REACTIONS (5)
  - Neutropenia [Recovering/Resolving]
  - Leukopenia [Recovering/Resolving]
  - General physical health deterioration [Unknown]
  - C-reactive protein increased [Unknown]
  - Pallor [Unknown]

NARRATIVE: CASE EVENT DATE: 20220429
